FAERS Safety Report 11243132 (Version 3)
Quarter: 2015Q4

REPORT INFORMATION
  Report Type: Spontaneous
  Country: US (occurrence: US)
  Receive Date: 20150707
  Receipt Date: 20151111
  Transmission Date: 20160304
  Serious: No
  Sender: FDA-Public Use
  Company Number: US-BIOGENIDEC-2015BI091908

PATIENT
  Sex: Female

DRUGS (1)
  1. TYSABRI [Suspect]
     Active Substance: NATALIZUMAB
     Indication: PRODUCT USED FOR UNKNOWN INDICATION
     Route: 042
     Dates: start: 20130204

REACTIONS (8)
  - Multiple sclerosis relapse [Unknown]
  - Drug effect decreased [Recovered/Resolved]
  - Diplopia [Unknown]
  - Disorientation [Unknown]
  - Peroneal nerve palsy [Unknown]
  - Balance disorder [Unknown]
  - Brain injury [Unknown]
  - Mobility decreased [Unknown]
